FAERS Safety Report 10219916 (Version 1)
Quarter: 2014Q2

REPORT INFORMATION
  Report Type: Spontaneous
  Country: AU (occurrence: AU)
  Receive Date: 20140605
  Receipt Date: 20140605
  Transmission Date: 20141212
  Serious: Yes (Other)
  Sender: FDA-Public Use
  Company Number: AU-MYLANLABS-2014S1012255

PATIENT
  Age: 38 Year
  Sex: Female

DRUGS (1)
  1. METFORMIN [Suspect]
     Indication: DIABETES MELLITUS

REACTIONS (4)
  - Hepatotoxicity [Recovered/Resolved]
  - Hepatic pain [Recovered/Resolved]
  - Hepatocellular injury [Recovered/Resolved]
  - Liver function test abnormal [Recovered/Resolved]
